FAERS Safety Report 4678376-X (Version None)
Quarter: 2005Q2

REPORT INFORMATION
  Report Type: 
  Country: None (occurrence: None)
  Receive Date: 20050531
  Receipt Date: 20050531
  Transmission Date: 20051028
  Serious: Yes (Disabling)
  Sender: FDA-Public Use
  Company Number: None

PATIENT
  Age: 53 Year
  Sex: Male
  Weight: 129.7287 kg

DRUGS (1)
  1. VIAGRA [Suspect]
     Indication: ERECTILE DYSFUNCTION

REACTIONS (3)
  - BLINDNESS [None]
  - EYE DISORDER [None]
  - OPTIC NERVE DISORDER [None]
